FAERS Safety Report 5792105-8 (Version None)
Quarter: 2008Q2

REPORT INFORMATION
  Report Type: 
  Country: None (occurrence: None)
  Receive Date: 20080626
  Receipt Date: 20080306
  Transmission Date: 20081010
  Serious: No
  Sender: FDA-Public Use
  Company Number: US-ASTRAZENECA-2008UW04576

PATIENT
  Age: 4 Year
  Sex: Male
  Weight: 20 kg

DRUGS (3)
  1. PULMICORT RESPULES [Suspect]
     Indication: ASTHMA
     Route: 055
  2. ALBUTEROL [Concomitant]
  3. CLARITIN [Concomitant]

REACTIONS (5)
  - AGGRESSION [None]
  - AMBLYOPIA [None]
  - PSYCHOMOTOR HYPERACTIVITY [None]
  - SOCIAL PROBLEM [None]
  - VISUAL ACUITY REDUCED [None]
